FAERS Safety Report 24982125 (Version 1)
Quarter: 2025Q1

REPORT INFORMATION
  Report Type: Spontaneous
  Country: US (occurrence: None)
  Receive Date: 20250215
  Receipt Date: 20250215
  Transmission Date: 20250409
  Serious: No
  Sender: FDA-CTU
  Company Number: None

PATIENT
  Age: 85 Year
  Sex: Male
  Weight: 103.5 kg

DRUGS (15)
  1. TOPROL XL [Suspect]
     Active Substance: METOPROLOL SUCCINATE
     Indication: Cerebrovascular accident
     Dosage: OTHER QUANTITY : 1 TABLET(S);?FREQUENCY : DAILY;?
     Route: 048
     Dates: start: 20240820, end: 20241115
  2. HYDROCORTISONE [Concomitant]
     Active Substance: HYDROCORTISONE
  3. apixaban 5 mg tablet [Concomitant]
  4. diltiazem ER 120 MG 24 hr capsule [Concomitant]
  5. CELECOXIB [Concomitant]
     Active Substance: CELECOXIB
  6. desvenlafaxine succinate 50 MG 24 hr tablet [Concomitant]
  7. DEVICE [Concomitant]
     Active Substance: DEVICE
  8. b complex vitamins capsule [Concomitant]
  9. OMEPRAZOLE [Concomitant]
     Active Substance: OMEPRAZOLE
  10. cholecalciferol, [Concomitant]
  11. vitamin D3, [Concomitant]
  12. co-enzyme Q-10 30 MG capsule [Concomitant]
  13. Bioflavonoid Products [Concomitant]
  14. (Ester-C) tablet [Concomitant]
  15. DIETARY SUPPLEMENT\HERBALS\MILK THISTLE [Concomitant]
     Active Substance: MILK THISTLE

REACTIONS (1)
  - Crying [None]

NARRATIVE: CASE EVENT DATE: 20240820
